FAERS Safety Report 5654913-3 (Version None)
Quarter: 2008Q1

REPORT INFORMATION
  Report Type: 
  Country: None (occurrence: None)
  Receive Date: 20080307
  Receipt Date: 20070904
  Transmission Date: 20080703
  Serious: No
  Sender: FDA-Public Use
  Company Number: A0678450A

PATIENT
  Sex: Male

DRUGS (10)
  1. REQUIP [Suspect]
     Indication: RESTLESS LEGS SYNDROME
     Dosage: 4MG THREE TIMES PER DAY
     Route: 048
     Dates: start: 20061101
  2. MIRAPEX [Concomitant]
  3. REQUIP [Concomitant]
  4. METFORMIN HCL [Concomitant]
  5. GLIMEPIRIDE [Concomitant]
  6. ASPIRIN [Concomitant]
  7. LISINOPRIL AND HYDROCHLOROTHIAZIDE [Concomitant]
  8. ZOLOFT [Concomitant]
  9. HYDROCODONE WITH APAP [Concomitant]
  10. LODINE [Concomitant]

REACTIONS (3)
  - DRUG ADMINISTRATION ERROR [None]
  - INSOMNIA [None]
  - SELF-MEDICATION [None]
